FAERS Safety Report 17709864 (Version 2)
Quarter: 2020Q2

REPORT INFORMATION
  Report Type: Spontaneous
  Country: IT (occurrence: IT)
  Receive Date: 20200427
  Receipt Date: 20200505
  Transmission Date: 20200714
  Serious: Yes (Death, Life-Threatening, Hospitalization, Other)
  Sender: FDA-Public Use
  Company Number: IT-VELOXIS PHARMACEUTICALS-2020VELIT-000332

PATIENT
  Age: 61 Year
  Sex: Male

DRUGS (15)
  1. ETANERCEPT [Suspect]
     Active Substance: ETANERCEPT
     Indication: ADJUVANT THERAPY
     Dosage: UNK
  2. ETANERCEPT [Suspect]
     Active Substance: ETANERCEPT
     Indication: IMMUNOSUPPRESSANT DRUG THERAPY
     Dosage: 50 MILLIGRAM, QWK, FROM POST-OPERATIVE DAY 19
     Route: 058
     Dates: start: 2016
  3. ENVARSUS XR [Suspect]
     Active Substance: TACROLIMUS
     Dosage: 0.075 MG/KG DAILY; STARTED FROM POST-OPERATIVE DAY 3; FROM POST OPERATIVE DAY 9 ADMINISTERED DISCONT
     Route: 065
     Dates: start: 201611, end: 2016
  4. ANTITHYMOCYTE IMMUNOGLOBULIN [Suspect]
     Active Substance: THYMOCYTE IMMUNE GLOBULIN NOS
     Indication: ADJUVANT THERAPY
     Dosage: UNK
  5. ANTITHYMOCYTE IMMUNOGLOBULIN [Suspect]
     Active Substance: THYMOCYTE IMMUNE GLOBULIN NOS
     Indication: GRAFT VERSUS HOST DISEASE
  6. ANTITHYMOCYTE IMMUNOGLOBULIN [Suspect]
     Active Substance: THYMOCYTE IMMUNE GLOBULIN NOS
     Indication: IMMUNOSUPPRESSANT DRUG THERAPY
     Dosage: 1.5 MG/KG DAILY; FROM POST-OPERATIVE DAY 19 FOR 3 DAYS
     Route: 065
     Dates: start: 2016, end: 2016
  7. METHYLPREDNISOLONE. [Suspect]
     Active Substance: METHYLPREDNISOLONE
     Indication: IMMUNOSUPPRESSANT DRUG THERAPY
     Dosage: 20 MILLIGRAM DAILY; STARTED FROM POST-OPERATIVE DAY 1
     Route: 065
     Dates: start: 201611, end: 2016
  8. ETANERCEPT [Suspect]
     Active Substance: ETANERCEPT
     Indication: GRAFT VERSUS HOST DISEASE
  9. GANCICLOVIR. [Suspect]
     Active Substance: GANCICLOVIR
     Indication: ANTIVIRAL TREATMENT
     Dosage: 5 MG/KG DAILY
     Route: 065
  10. DAPTOMYCIN. [Suspect]
     Active Substance: DAPTOMYCIN
     Indication: ANTIBIOTIC PROPHYLAXIS
     Dosage: UNK
     Route: 065
  11. ENVARSUS XR [Suspect]
     Active Substance: TACROLIMUS
     Indication: IMMUNOSUPPRESSANT DRUG THERAPY
     Dosage: 0.04 MG/KG DAILY; LOWER DOSE OF TACROLIMUS FROM POST-OPERATIVE DAY 19
     Route: 065
     Dates: start: 2016
  12. MEROPENEM. [Suspect]
     Active Substance: MEROPENEM
     Indication: ANTIBIOTIC PROPHYLAXIS
     Dosage: UNK
     Route: 065
  13. METHYLPREDNISOLONE. [Suspect]
     Active Substance: METHYLPREDNISOLONE
     Dosage: 40 MILLIGRAM DAILY; FROM POST-OPERATIVE DAY 19
     Route: 065
     Dates: start: 2016
  14. EVEROLIMUS. [Suspect]
     Active Substance: EVEROLIMUS
     Indication: IMMUNOSUPPRESSANT DRUG THERAPY
     Dosage: 3 MILLIGRAM DAILY; STARTED FROM POST-OPERATIVE DAY 7 AND STOPPED ON POST OPERATIVE DAY 9
     Route: 065
     Dates: start: 201611, end: 2016
  15. CASPOFUNGIN [Suspect]
     Active Substance: CASPOFUNGIN
     Indication: ANTIFUNGAL PROPHYLAXIS
     Dosage: UNK
     Route: 065

REACTIONS (18)
  - Cytomegalovirus infection [Fatal]
  - Enterococcal infection [Fatal]
  - Drug ineffective [Fatal]
  - Graft versus host disease in skin [Unknown]
  - Malnutrition [Unknown]
  - Multiple organ dysfunction syndrome [Fatal]
  - Bone marrow disorder [Unknown]
  - Septic shock [Fatal]
  - Diarrhoea [Unknown]
  - Intestinal haemorrhage [Unknown]
  - Haemoglobin decreased [Unknown]
  - Platelet count decreased [Unknown]
  - Aspergillus infection [Fatal]
  - Enteritis [Unknown]
  - Chimerism [Unknown]
  - Leukopenia [Recovering/Resolving]
  - Aplastic anaemia [Unknown]
  - Systemic inflammatory response syndrome [Unknown]

NARRATIVE: CASE EVENT DATE: 2016
